FAERS Safety Report 14538800 (Version 1)
Quarter: 2018Q1

REPORT INFORMATION
  Report Type: Spontaneous
  Country: JP (occurrence: JP)
  Receive Date: 20180216
  Receipt Date: 20180216
  Transmission Date: 20180509
  Serious: Yes (Other)
  Sender: FDA-Public Use
  Company Number: JP-VISTAPHARM, INC.-VER201802-000382

PATIENT
  Age: 50 Year
  Sex: Female
  Weight: 47 kg

DRUGS (5)
  1. FENTANYL. [Suspect]
     Active Substance: FENTANYL
     Indication: CANCER PAIN
  2. OXYCODONE [Suspect]
     Active Substance: OXYCODONE
  3. OXYCODONE [Suspect]
     Active Substance: OXYCODONE
     Route: 048
  4. MORPHINE [Suspect]
     Active Substance: MORPHINE
     Indication: CANCER PAIN
     Route: 042
  5. OXYCODONE [Suspect]
     Active Substance: OXYCODONE
     Indication: CANCER PAIN
     Route: 048

REACTIONS (2)
  - Delirium [Recovered/Resolved]
  - Sepsis [Recovered/Resolved]
